FAERS Safety Report 20156453 (Version 1)
Quarter: 2021Q4

REPORT INFORMATION
  Report Type: Spontaneous
  Country: AU (occurrence: AU)
  Receive Date: 20211207
  Receipt Date: 20211207
  Transmission Date: 20220303
  Serious: Yes (Other)
  Sender: FDA-Public Use
  Company Number: None

PATIENT
  Sex: Female

DRUGS (23)
  1. VORINOSTAT [Suspect]
     Active Substance: VORINOSTAT
  2. ARSENIC TRIOXIDE [Suspect]
     Active Substance: ARSENIC TRIOXIDE
  3. BORTEZOMIB [Suspect]
     Active Substance: BORTEZOMIB
  4. CAPECITABINE [Suspect]
     Active Substance: CAPECITABINE
  5. CARBOPLATIN [Suspect]
     Active Substance: CARBOPLATIN
  6. CYCLOPHOSPHAMIDE [Suspect]
     Active Substance: CYCLOPHOSPHAMIDE
  7. DABRAFENIB MESYLATE [Suspect]
     Active Substance: DABRAFENIB MESYLATE
  8. ROMIDEPSIN [Suspect]
     Active Substance: ROMIDEPSIN
     Route: 042
  9. DOXORUBICIN HYDROCHLORIDE [Suspect]
     Active Substance: DOXORUBICIN HYDROCHLORIDE
  10. EPIRUBICIN HYDROCHLORIDE [Suspect]
     Active Substance: EPIRUBICIN HYDROCHLORIDE
  11. ERIBULIN [Suspect]
     Active Substance: ERIBULIN
  12. FLUOROURACIL [Suspect]
     Active Substance: FLUOROURACIL
  13. KISQALI [Suspect]
     Active Substance: RIBOCICLIB
  14. LAPATINIB [Suspect]
     Active Substance: LAPATINIB
  15. OXALIPLATIN [Suspect]
     Active Substance: OXALIPLATIN
  16. PALBOCICLIB [Suspect]
     Active Substance: PALBOCICLIB
  17. ROMIDEPSIN [Suspect]
     Active Substance: ROMIDEPSIN
  18. SUNITINIB [Suspect]
     Active Substance: SUNITINIB
  19. TAMOXIFEN CITRATE [Suspect]
     Active Substance: TAMOXIFEN CITRATE
  20. VEMURAFENIB [Suspect]
     Active Substance: VEMURAFENIB
  21. RITUXIMAB [Suspect]
     Active Substance: RITUXIMAB
  22. CISPLATIN [Suspect]
     Active Substance: CISPLATIN
  23. CYCLOPHOSPHAMIDE [Suspect]
     Active Substance: CYCLOPHOSPHAMIDE

REACTIONS (1)
  - Electrocardiogram QT prolonged [Unknown]
